FAERS Safety Report 13935112 (Version 1)
Quarter: 2017Q3

REPORT INFORMATION
  Report Type: Spontaneous
  Country: US (occurrence: None)
  Receive Date: 20170901
  Receipt Date: 20170901
  Transmission Date: 20171127
  Serious: No
  Sender: FDA-Public Use
  Company Number: None

PATIENT
  Age: 60 Year
  Sex: Male
  Weight: 122.65 kg

DRUGS (1)
  1. LIDOCAINE. [Suspect]
     Active Substance: LIDOCAINE
     Indication: PAIN
     Route: 061
     Dates: start: 20160815, end: 20170810

REACTIONS (5)
  - Drug ineffective [None]
  - Discomfort [None]
  - Product substitution issue [None]
  - Product physical issue [None]
  - Product adhesion issue [None]

NARRATIVE: CASE EVENT DATE: 20170710
